FAERS Safety Report 20181702 (Version 1)
Quarter: 2021Q4

REPORT INFORMATION
  Report Type: Report from Study
  Country: US (occurrence: US)
  Receive Date: 20211214
  Receipt Date: 20211214
  Transmission Date: 20220303
  Serious: Yes (Hospitalization, Other)
  Sender: FDA-Public Use
  Company Number: US-GILEAD-2021-0560684

PATIENT
  Age: 29 Year
  Sex: Male

DRUGS (5)
  1. AZTREONAM LYSINE [Suspect]
     Active Substance: AZTREONAM LYSINE
     Indication: Cystic fibrosis
     Dosage: 1 VIAL, TID, CONTINUOUSLY
     Route: 055
     Dates: start: 20200725
  2. RELISTOR [Concomitant]
     Active Substance: METHYLNALTREXONE BROMIDE
  3. SIVEXTRO [Concomitant]
     Active Substance: TEDIZOLID PHOSPHATE
  4. SODIUM CHLORIDE [Concomitant]
     Active Substance: SODIUM CHLORIDE
  5. ZENPEP [Concomitant]
     Active Substance: PANCRELIPASE AMYLASE\PANCRELIPASE LIPASE\PANCRELIPASE PROTEASE

REACTIONS (3)
  - Cystic fibrosis respiratory infection suppression [Unknown]
  - Product dose omission in error [Unknown]
  - Off label use [Unknown]
